FAERS Safety Report 11005770 (Version 1)
Quarter: 2015Q1

REPORT INFORMATION
  Report Type: Spontaneous
  Country: US (occurrence: None)
  Receive Date: 20150302
  Receipt Date: 20150302
  Transmission Date: 20150721
  Serious: Yes (Hospitalization)
  Sender: FDA-Public Use
  Company Number: 2014000031S

PATIENT
  Age: 56 Year
  Sex: Female
  Weight: 54.1 kg

DRUGS (14)
  1. XEOMIN [Suspect]
     Active Substance: INCOBOTULINUMTOXINA
     Indication: TORTICOLLIS
     Route: 030
     Dates: start: 20130204
  2. BENADRUL/00000-402/ (DIPHENHYDRAMINE HYDROCHLORIDE) [Concomitant]
  3. BUTORPHANOL [Concomitant]
     Active Substance: BUTORPHANOL
  4. PHENERGAN/00033001/ (PROMETHAZINE) [Concomitant]
  5. KEFLEX [Suspect]
     Active Substance: CEPHALEXIN
     Indication: HORDEOLUM
     Route: 048
     Dates: start: 20131206, end: 20131206
  6. AMITRIPTYLINE [Concomitant]
     Active Substance: AMITRIPTYLINE
  7. FIORICET (BUTALBITAL, CAFFEINE, PARACETAMOL) [Concomitant]
  8. IBUPROFEN. [Concomitant]
     Active Substance: IBUPROFEN
  9. EPINEPHRINE. [Concomitant]
     Active Substance: EPINEPHRINE
  10. FLEXERIL/00428402/ (CYCLOBENZAPRINE HYDROCHLORIDE) [Concomitant]
  11. LORATADINE. [Concomitant]
     Active Substance: LORATADINE
  12. METOPROLOL [Concomitant]
     Active Substance: METOPROLOL
  13. PRILOSEC/00661201/ (OMEPRAZOLE) [Concomitant]
  14. SIMVASTATIN. [Concomitant]
     Active Substance: SIMVASTATIN

REACTIONS (2)
  - Rash [None]
  - Anaphylactic reaction [None]

NARRATIVE: CASE EVENT DATE: 20131206
